FAERS Safety Report 21059586 (Version 1)
Quarter: 2022Q3

REPORT INFORMATION
  Report Type: Spontaneous
  Country: US (occurrence: US)
  Receive Date: 20220708
  Receipt Date: 20220708
  Transmission Date: 20221027
  Serious: No
  Sender: FDA-Public Use
  Company Number: US-PFIZER INC-PV202200018159

PATIENT
  Age: 67 Year
  Sex: Female

DRUGS (1)
  1. DISOPYRAMIDE PHOSPHATE [Suspect]
     Active Substance: DISOPYRAMIDE PHOSPHATE
     Indication: Arrhythmia
     Dosage: 100 MG, 2X/DAY
     Route: 048
     Dates: start: 20220701

REACTIONS (3)
  - Dyspepsia [Unknown]
  - Hernia [Unknown]
  - Intentional product misuse [Unknown]
